FAERS Safety Report 5423471-0 (Version None)
Quarter: 2007Q3

REPORT INFORMATION
  Report Type: 
  Country: None (occurrence: None)
  Receive Date: 20070823
  Receipt Date: 20070816
  Transmission Date: 20080115
  Serious: Yes (Other)
  Sender: FDA-Public Use
  Company Number: JP-SP-2007-02646

PATIENT
  Age: 65 Year
  Sex: Male

DRUGS (5)
  1. IMMUCYST [Suspect]
     Indication: CARCINOMA IN SITU OF BLADDER
     Route: 043
     Dates: start: 20060914, end: 20061106
  2. IMMUCYST [Suspect]
     Route: 043
     Dates: start: 20060914, end: 20061106
  3. IMMUCYST [Suspect]
     Route: 043
     Dates: start: 20060914, end: 20061106
  4. PIOGLITAZONE HYPOCHLORIDE [Concomitant]
     Route: 048
     Dates: start: 20060914, end: 20061106
  5. GLIMEPRIDE [Concomitant]
     Route: 048
     Dates: start: 20060914, end: 20061106

REACTIONS (5)
  - DYSURIA [None]
  - HAEMATURIA [None]
  - NEPHROURETERECTOMY [None]
  - PYURIA [None]
  - TRANSITIONAL CELL CANCER OF THE RENAL PELVIS AND URETER [None]
